FAERS Safety Report 8066852-1 (Version None)
Quarter: 2012Q1

REPORT INFORMATION
  Report Type: 
  Country: None (occurrence: None)
  Receive Date: 20120124
  Receipt Date: 20120120
  Transmission Date: 20120608
  Serious: Yes (Other)
  Sender: FDA-Public Use
  Company Number: US-BAYER-2011-121484

PATIENT
  Sex: Female

DRUGS (1)
  1. MIRENA [Suspect]
     Dosage: UNK, CONT
     Route: 015
     Dates: start: 20080101

REACTIONS (3)
  - METRORRHAGIA [None]
  - AMENORRHOEA [None]
  - VAGINAL HAEMORRHAGE [None]
